FAERS Safety Report 11247935 (Version 1)
Quarter: 2015Q3

REPORT INFORMATION
  Report Type: Spontaneous
  Country: BR (occurrence: None)
  Receive Date: 20150706
  Receipt Date: 20150706
  Transmission Date: 20151125
  Serious: Yes (Hospitalization)
  Sender: FDA-Public Use
  Company Number: 2015CHA00004

PATIENT
  Age: 64 Year
  Sex: Female

DRUGS (1)
  1. DOXYCYCLINE HYCLATE (DOXYCYCLINE) UNKNOWN [Suspect]
     Active Substance: DOXYCYCLINE HYCLATE
     Indication: ERYSIPELAS

REACTIONS (1)
  - Drug eruption [None]
